FAERS Safety Report 7406282 (Version 4)
Quarter: 2020Q2

REPORT INFORMATION
  Report Type: Spontaneous
  Country: NL (occurrence: NL)
  Receive Date: 20100601
  Receipt Date: 20200520
  Transmission Date: 20200714
  Serious: Yes (Hospitalization, Other)
  Sender: FDA-Public Use
  Company Number: PHHY2010NL32010

PATIENT
  Age: 48 Year
  Sex: Female

DRUGS (6)
  1. ATG [Concomitant]
     Active Substance: LAPINE T-LYMPHOCYTE IMMUNE GLOBULIN
     Indication: APLASTIC ANAEMIA
     Dosage: 15 MG/KG, QD
     Route: 042
  2. ATG [Concomitant]
     Active Substance: LAPINE T-LYMPHOCYTE IMMUNE GLOBULIN
     Indication: ALLERGY PROPHYLAXIS
  3. SANDIMMUN [Suspect]
     Active Substance: CYCLOSPORINE
     Indication: APLASTIC ANAEMIA
     Dosage: 350 MG, BID
     Route: 048
  4. CIPROFLOXACIN. [Concomitant]
     Active Substance: CIPROFLOXACIN
     Indication: PRODUCT USED FOR UNKNOWN INDICATION
     Dosage: 500 MG, BID
     Route: 048
  5. FLUCONAZOLE. [Concomitant]
     Active Substance: FLUCONAZOLE
     Indication: PRODUCT USED FOR UNKNOWN INDICATION
     Dosage: 200 MG, QD
     Route: 048
  6. PREDNISONE. [Concomitant]
     Active Substance: PREDNISONE
     Indication: APLASTIC ANAEMIA
     Dosage: 60 MG, QD
     Route: 048

REACTIONS (10)
  - Hypoaesthesia [Recovered/Resolved]
  - Bicytopenia [Recovered/Resolved]
  - Cerebrovascular accident [Recovered/Resolved]
  - Neurotoxicity [Recovered/Resolved]
  - Cerebral vasoconstriction [Recovered/Resolved]
  - Feeling cold [Recovered/Resolved]
  - Blood magnesium decreased [Unknown]
  - Muscular weakness [Recovered/Resolved]
  - Feeling of body temperature change [Unknown]
  - Immunosuppressant drug level increased [Recovered/Resolved]
